FAERS Safety Report 8455734-9 (Version None)
Quarter: 2012Q2

REPORT INFORMATION
  Report Type: 
  Country: None (occurrence: None)
  Receive Date: 20120621
  Receipt Date: 20120618
  Transmission Date: 20120825
  Serious: Yes (Other)
  Sender: FDA-Public Use
  Company Number: GB-PFIZER INC-2012146964

PATIENT
  Age: 22 Year
  Sex: Female

DRUGS (4)
  1. MISOPROSTOL [Suspect]
     Indication: ABORTION INDUCED
     Dosage: 400 UG, 1X/DAY
     Route: 067
     Dates: start: 20010227, end: 20010227
  2. MIFEGYNE [Suspect]
     Indication: ABORTION INDUCED
     Dosage: 200 MG, 1X/DAY
     Route: 048
     Dates: start: 20010225, end: 20010225
  3. METRONIDAZOLE [Concomitant]
     Dosage: 1 G, UNK
     Dates: start: 20010227, end: 20010227
  4. DEPO-PROVERA [Concomitant]
     Dosage: 150 MG, UNK
     Dates: start: 20010227, end: 20010227

REACTIONS (7)
  - PREMATURE SEPARATION OF PLACENTA [None]
  - FOETAL DEATH [None]
  - DRUG ADMINISTRATION ERROR [None]
  - DRUG INEFFECTIVE FOR UNAPPROVED INDICATION [None]
  - INCORRECT ROUTE OF DRUG ADMINISTRATION [None]
  - INDUCED ABORTION FAILED [None]
  - INCORRECT DOSE ADMINISTERED [None]
